FAERS Safety Report 4447498-0 (Version None)
Quarter: 2004Q3

REPORT INFORMATION
  Report Type: 
  Country: None (occurrence: None)
  Receive Date: 20040823
  Receipt Date: 20040521
  Transmission Date: 20050211
  Serious: No
  Sender: FDA-Public Use
  Company Number: PHEH2004US05638

PATIENT
  Age: 54 Year
  Sex: Male

DRUGS (6)
  1. ZELNORM [Suspect]
     Indication: IRRITABLE BOWEL SYNDROME
     Dosage: 6 MG, BID, ORAL
     Route: 048
     Dates: start: 20040507
  2. NEXIUM [Concomitant]
  3. COLAZAL (BALSALAZIDE SODIUM) [Concomitant]
  4. DIOVAN [Concomitant]
  5. PROCARDIA [Concomitant]
  6. THIAZIDES [Concomitant]

REACTIONS (2)
  - RASH ERYTHEMATOUS [None]
  - RASH PRURITIC [None]
